FAERS Safety Report 19117862 (Version 6)
Quarter: 2021Q3

REPORT INFORMATION
  Report Type: Report from Study
  Country: US (occurrence: US)
  Receive Date: 20210409
  Receipt Date: 20210927
  Transmission Date: 20211014
  Serious: Yes (Hospitalization, Other)
  Sender: FDA-Public Use
  Company Number: US-GILEAD-2021-0524554

PATIENT
  Age: 32 Year
  Sex: Male

DRUGS (57)
  1. BACLOFEN. [Concomitant]
     Active Substance: BACLOFEN
  2. DOCUSATE SODIUM. [Concomitant]
     Active Substance: DOCUSATE SODIUM
  3. SENNOSIDE A+B [Concomitant]
     Active Substance: SENNOSIDES A AND B
  4. ENOXAPARIN SODIUM. [Concomitant]
     Active Substance: ENOXAPARIN SODIUM
  5. HYPROMELLOSE [Concomitant]
     Active Substance: HYPROMELLOSES
  6. INSULIN [Concomitant]
     Active Substance: INSULIN NOS
  7. IOHEXOL [Concomitant]
     Active Substance: IOHEXOL
  8. LABETALOL HYDROCHLORIDE. [Concomitant]
     Active Substance: LABETALOL HYDROCHLORIDE
  9. METRONIDAZOLE. [Concomitant]
     Active Substance: METRONIDAZOLE
  10. THIAMINE HYDROCHLORIDE. [Concomitant]
     Active Substance: THIAMINE HYDROCHLORIDE
  11. TROPICAMIDE. [Concomitant]
     Active Substance: TROPICAMIDE
  12. IPRATROPIUM BROMIDE. [Concomitant]
     Active Substance: IPRATROPIUM BROMIDE
  13. MINERALS NOS [Concomitant]
     Active Substance: MINERALS
  14. NOREPINEPHRINE BITARTRATE. [Concomitant]
     Active Substance: NOREPINEPHRINE BITARTRATE
  15. POTASSIUM CHLORIDE. [Concomitant]
     Active Substance: POTASSIUM CHLORIDE
  16. REMDESIVIR. [Suspect]
     Active Substance: REMDESIVIR
     Indication: COVID-19
     Dosage: UNK UNK, QD
     Route: 042
     Dates: start: 20210302
  17. BACITRACIN. [Concomitant]
     Active Substance: BACITRACIN
  18. BENZYL PENICILLIN [BENZYLPENICILLIN POTASSIUM] [Concomitant]
     Active Substance: PENICILLIN G POTASSIUM
  19. CARVEDILOL. [Concomitant]
     Active Substance: CARVEDILOL
  20. EUCALYPTUS GLOBULUS OIL;MENTHOL [Concomitant]
  21. HYDROMORPHONE HYDROCHLORIDE. [Concomitant]
     Active Substance: HYDROMORPHONE HYDROCHLORIDE
  22. SALBUTAMOL SULFATE [Concomitant]
     Active Substance: ALBUTEROL SULFATE
  23. NICARDIPINE HYDROCHLORIDE. [Concomitant]
     Active Substance: NICARDIPINE HYDROCHLORIDE
  24. OXYCODONE [Concomitant]
     Active Substance: OXYCODONE
  25. BENZYL ALCOHOL [Concomitant]
     Active Substance: BENZYL ALCOHOL
  26. SODIUM CHLORIDE. [Concomitant]
     Active Substance: SODIUM CHLORIDE
  27. CODEINE [Concomitant]
     Active Substance: CODEINE
  28. HALOPERIDOL DECANOATE. [Concomitant]
     Active Substance: HALOPERIDOL DECANOATE
  29. VANCOMYCIN [Concomitant]
     Active Substance: VANCOMYCIN
     Indication: COVID-19
     Dosage: UNK
     Dates: start: 20210302
  30. CEFIXIME. [Concomitant]
     Active Substance: CEFIXIME
  31. CALCIUM GLUCONATE. [Concomitant]
     Active Substance: CALCIUM GLUCONATE
  32. CEFEPIME [Concomitant]
     Active Substance: CEFEPIME HYDROCHLORIDE
  33. FAMOTIDINE. [Concomitant]
     Active Substance: FAMOTIDINE
  34. FENTANYL. [Concomitant]
     Active Substance: FENTANYL
  35. LACTOBACILLUS NOS [Concomitant]
     Active Substance: PROBIOTICS NOS
  36. LIDOCAINE. [Concomitant]
     Active Substance: LIDOCAINE
  37. BUPIVACAINE HYDROCHLORIDE AND EPINEPHRINE [Concomitant]
     Active Substance: BUPIVACAINE HYDROCHLORIDE\EPINEPHRINE BITARTRATE
  38. PLACEBO [Suspect]
     Active Substance: UNSPECIFIED INGREDIENT
     Indication: COVID-19
     Dosage: UNK, ONCE
     Route: 042
     Dates: start: 20210302
  39. FUROSEMIDE. [Concomitant]
     Active Substance: FUROSEMIDE
  40. MEGLUMINE GADOTERATE [Concomitant]
     Active Substance: GADOTERATE MEGLUMINE
  41. VITAMINS NOS [Concomitant]
     Active Substance: VITAMINS
  42. MOMETASONE FUROATE. [Concomitant]
     Active Substance: MOMETASONE FUROATE
  43. MENTHOL. [Concomitant]
     Active Substance: MENTHOL
  44. BUPIVACAINE. [Concomitant]
     Active Substance: BUPIVACAINE
  45. GUAIFENESIN. [Concomitant]
     Active Substance: GUAIFENESIN
  46. DEXAMETHASONE. [Concomitant]
     Active Substance: DEXAMETHASONE
  47. RAMIPRIL. [Concomitant]
     Active Substance: RAMIPRIL
  48. MELATONIN [Concomitant]
     Active Substance: MELATONIN
  49. NALOXONE HYDROCHLORIDE. [Concomitant]
     Active Substance: NALOXONE HYDROCHLORIDE
  50. BLINDED INFLIXIMAB [Suspect]
     Active Substance: INFLIXIMAB
     Indication: COVID-19
     Dosage: UNK, ONCE
     Route: 042
     Dates: start: 20210302
  51. CALCIUM CARBONATE. [Concomitant]
     Active Substance: CALCIUM CARBONATE
  52. CEFTRIAXONE. [Concomitant]
     Active Substance: CEFTRIAXONE
  53. CISATRACURIUM BESILATE [Concomitant]
     Active Substance: CISATRACURIUM BESYLATE
  54. GABAPENTIN. [Concomitant]
     Active Substance: GABAPENTIN
  55. LEVETIRACETAM. [Concomitant]
     Active Substance: LEVETIRACETAM
  56. LOSARTAN POTASSIUM. [Concomitant]
     Active Substance: LOSARTAN POTASSIUM
  57. VALACICLOVIR [Concomitant]
     Active Substance: VALACYCLOVIR HYDROCHLORIDE

REACTIONS (1)
  - Septic pulmonary embolism [Recovered/Resolved]

NARRATIVE: CASE EVENT DATE: 20210308
